FAERS Safety Report 6736985-8 (Version None)
Quarter: 2010Q2

REPORT INFORMATION
  Report Type: 
  Country: None (occurrence: None)
  Receive Date: 20100523
  Receipt Date: 20100324
  Transmission Date: 20101027
  Serious: No
  Sender: FDA-Public Use
  Company Number: US-ALLERGAN-1003850US

PATIENT
  Age: 75 Year
  Sex: Male

DRUGS (1)
  1. COMBIGAN [Suspect]
     Indication: INTRAOCULAR PRESSURE INCREASED
     Dosage: 1 GTT, QD
     Route: 047
     Dates: start: 20090401, end: 20100320

REACTIONS (5)
  - ERYTHEMA [None]
  - EXFOLIATIVE RASH [None]
  - EYE IRRITATION [None]
  - EYE PAIN [None]
  - SWELLING FACE [None]
